FAERS Safety Report 5764593-4 (Version None)
Quarter: 2008Q2

REPORT INFORMATION
  Report Type: 
  Country: None (occurrence: None)
  Receive Date: 20080610
  Receipt Date: 20080605
  Transmission Date: 20081010
  Serious: Yes (Hospitalization)
  Sender: FDA-Public Use
  Company Number: US-PURDUE-USA_2008_0031907

PATIENT
  Age: 59 Year
  Sex: Female
  Weight: 88 kg

DRUGS (1)
  1. OXYCONTIN [Suspect]
     Indication: BACK PAIN
     Dosage: UNK, SEE TEXT

REACTIONS (3)
  - INJECTION SITE ABSCESS [None]
  - INTENTIONAL DRUG MISUSE [None]
  - OVERDOSE [None]
